FAERS Safety Report 12610239 (Version 1)
Quarter: 2016Q3

REPORT INFORMATION
  Report Type: Report from Study
  Country: VN (occurrence: VN)
  Receive Date: 20160801
  Receipt Date: 20160801
  Transmission Date: 20161109
  Serious: Yes (Hospitalization)
  Sender: FDA-Public Use
  Company Number: VN-009507513-1607VNM011711

PATIENT
  Age: 82 Year
  Sex: Male

DRUGS (1)
  1. COZAAR [Suspect]
     Active Substance: LOSARTAN POTASSIUM
     Indication: HYPERTENSION
     Dosage: 50 MG, QD
     Route: 048
     Dates: start: 20140401

REACTIONS (3)
  - Prostatic disorder [Recovering/Resolving]
  - Cardiac disorder [Recovering/Resolving]
  - Intervertebral disc protrusion [Recovering/Resolving]
